FAERS Safety Report 6109191-8 (Version None)
Quarter: 2009Q1

REPORT INFORMATION
  Report Type: 
  Country: None (occurrence: None)
  Receive Date: 20090306
  Receipt Date: 20090227
  Transmission Date: 20090719
  Serious: Yes (Death, Hospitalization)
  Sender: FDA-Public Use
  Company Number: 2009US000291

PATIENT
  Age: 53 Year
  Sex: Male

DRUGS (6)
  1. PROGRAF [Suspect]
     Indication: RENAL TRANSPLANT
     Dosage: 2 MG, UID/QD, ORAL
     Route: 048
     Dates: start: 20070401
  2. MYCOPHENOLATE MOFETIL [Concomitant]
  3. LOSARTAN POTASSIUM [Concomitant]
  4. METOPROLOL TARTRATE [Concomitant]
  5. ENALAPRIL MALEATE [Concomitant]
  6. FUROSEMIDE [Concomitant]

REACTIONS (2)
  - KIDNEY INFECTION [None]
  - TRANSPLANT REJECTION [None]
